FAERS Safety Report 25884441 (Version 2)
Quarter: 2025Q4

REPORT INFORMATION
  Report Type: Spontaneous
  Country: US (occurrence: US)
  Receive Date: 20251006
  Receipt Date: 20251231
  Transmission Date: 20260117
  Serious: Yes (Hospitalization, Other)
  Sender: AMGEN
  Company Number: US-AMGEN-USASP2025195327

PATIENT
  Sex: Female

DRUGS (8)
  1. NPLATE [Suspect]
     Active Substance: ROMIPLOSTIM
     Indication: Immune thrombocytopenia
     Dosage: 250 MICROGRAM
     Route: 065
     Dates: start: 20250815
  2. NPLATE [Suspect]
     Active Substance: ROMIPLOSTIM
     Indication: Neoplasm malignant
     Dosage: 295 MICROGRAM, (4 MICROGRAM/KILOGRAM/DOSE)
     Route: 065
     Dates: start: 20250822
  3. NPLATE [Suspect]
     Active Substance: ROMIPLOSTIM
     Dosage: 305 MICROGRAM, (4 MICROGRAM/KILOGRAM/DOSE)
     Route: 065
     Dates: start: 20250828
  4. NPLATE [Suspect]
     Active Substance: ROMIPLOSTIM
     Dosage: 435 MICROGRAM, (6 MICROGRAM/KILOGRAM/DOSE)
     Route: 065
     Dates: start: 20250904
  5. NPLATE [Suspect]
     Active Substance: ROMIPLOSTIM
     Dosage: 500 MICROGRAM
     Route: 065
     Dates: start: 20250911
  6. NPLATE [Suspect]
     Active Substance: ROMIPLOSTIM
     Dosage: UNK, (8 MCG/KG/DOSE)
     Route: 065
     Dates: start: 20250918
  7. NPLATE [Suspect]
     Active Substance: ROMIPLOSTIM
     Dosage: 650 MICROGRAM
     Route: 065
     Dates: start: 20250926
  8. IVIGLOB EX [Concomitant]
     Active Substance: HUMAN IMMUNOGLOBULIN G
     Dosage: UNK
     Route: 065

REACTIONS (4)
  - Haemorrhage intracranial [Unknown]
  - Cerebrovascular accident [Unknown]
  - Thrombocytopenia [Recovered/Resolved]
  - Drug effect less than expected [Unknown]

NARRATIVE: CASE EVENT DATE: 20250101
